FAERS Safety Report 10173372 (Version 2)
Quarter: 2014Q2

REPORT INFORMATION
  Report Type: Spontaneous
  Country: US (occurrence: US)
  Receive Date: 20140515
  Receipt Date: 20140619
  Transmission Date: 20141212
  Serious: Yes (Other)
  Sender: FDA-Public Use
  Company Number: US-TEVA-481552USA

PATIENT
  Age: 38 Year
  Sex: Female

DRUGS (1)
  1. PARAGARD 380A [Suspect]
     Indication: CONTRACEPTION
     Route: 015
     Dates: start: 20100623, end: 20140505

REACTIONS (2)
  - Embedded device [Recovered/Resolved]
  - Device breakage [Recovered/Resolved]
